FAERS Safety Report 13082468 (Version 10)
Quarter: 2017Q3

REPORT INFORMATION
  Report Type: Spontaneous
  Country: CN (occurrence: CN)
  Receive Date: 20170103
  Receipt Date: 20170803
  Transmission Date: 20171127
  Serious: Yes (Other)
  Sender: FDA-Public Use
  Company Number: CN-ELI_LILLY_AND_COMPANY-CN201509006826

PATIENT
  Age: 38 Year
  Sex: Male
  Weight: 80 kg

DRUGS (27)
  1. PROZAC [Suspect]
     Active Substance: FLUOXETINE HYDROCHLORIDE
     Indication: DEPRESSION
     Dosage: 2 DF, BID
     Route: 048
  2. PROZAC [Suspect]
     Active Substance: FLUOXETINE HYDROCHLORIDE
     Dosage: 2 DF, BID
     Route: 048
  3. PROZAC [Suspect]
     Active Substance: FLUOXETINE HYDROCHLORIDE
     Dosage: UNK UNK, BID
     Route: 048
  4. PROZAC [Suspect]
     Active Substance: FLUOXETINE HYDROCHLORIDE
     Indication: ANXIETY
  5. STRATTERA [Suspect]
     Active Substance: ATOMOXETINE HYDROCHLORIDE
     Indication: ATTENTION DEFICIT/HYPERACTIVITY DISORDER
     Dosage: 20 MG, BID
     Route: 065
     Dates: start: 201609, end: 20161007
  6. PROZAC [Suspect]
     Active Substance: FLUOXETINE HYDROCHLORIDE
     Dosage: UNK, UNKNOWN
     Route: 065
     Dates: start: 2008
  7. PROZAC [Suspect]
     Active Substance: FLUOXETINE HYDROCHLORIDE
     Dosage: 3 DF, BID
     Route: 048
  8. PROZAC [Suspect]
     Active Substance: FLUOXETINE HYDROCHLORIDE
     Dosage: UNK, BID
     Route: 048
     Dates: start: 2012
  9. ZYPREXA [Suspect]
     Active Substance: OLANZAPINE
     Indication: ANXIETY
     Dosage: 3 DF, BID
     Route: 048
     Dates: start: 2013
  10. PROZAC [Suspect]
     Active Substance: FLUOXETINE HYDROCHLORIDE
     Indication: OBSESSIVE-COMPULSIVE DISORDER
     Dosage: UNK UNK, BID
     Route: 048
     Dates: start: 2013
  11. PROZAC [Suspect]
     Active Substance: FLUOXETINE HYDROCHLORIDE
     Dosage: 2 DF, EACH EVENING
     Route: 048
     Dates: start: 201403
  12. BUSPIRONE [Concomitant]
     Active Substance: BUSPIRONE HYDROCHLORIDE
     Indication: PRODUCT USED FOR UNKNOWN INDICATION
     Dosage: UNK UNK, UNKNOWN
     Route: 065
  13. PROZAC [Suspect]
     Active Substance: FLUOXETINE HYDROCHLORIDE
     Indication: PRODUCT USED FOR UNKNOWN INDICATION
     Dosage: UNK, UNKNOWN
     Route: 065
     Dates: start: 2006, end: 2008
  14. PROZAC [Suspect]
     Active Substance: FLUOXETINE HYDROCHLORIDE
     Indication: ANXIETY
     Dosage: 1 DF, BID
     Route: 048
     Dates: start: 201403
  15. PROZAC [Suspect]
     Active Substance: FLUOXETINE HYDROCHLORIDE
     Dosage: 2 DF, EACH MORNING
     Route: 048
     Dates: start: 201403
  16. STRATTERA [Suspect]
     Active Substance: ATOMOXETINE HYDROCHLORIDE
     Dosage: 80 MG, QD
     Route: 065
     Dates: start: 20161005, end: 20161005
  17. ZYPREXA [Suspect]
     Active Substance: OLANZAPINE
     Indication: OBSESSIVE THOUGHTS
     Dosage: 2 DF, BID
     Route: 048
     Dates: start: 2013
  18. CYMBALTA [Suspect]
     Active Substance: DULOXETINE HYDROCHLORIDE
     Indication: OBSESSIVE-COMPULSIVE DISORDER
     Dosage: 2 DF, BID
     Route: 048
     Dates: start: 2013
  19. CYMBALTA [Suspect]
     Active Substance: DULOXETINE HYDROCHLORIDE
     Indication: ANXIETY
     Dosage: 3 DF, BID
     Route: 048
     Dates: start: 2013
  20. PROZAC [Suspect]
     Active Substance: FLUOXETINE HYDROCHLORIDE
     Dosage: UNK, UNKNOWN
     Route: 065
     Dates: end: 20161220
  21. STRATTERA [Suspect]
     Active Substance: ATOMOXETINE HYDROCHLORIDE
     Dosage: 40 MG, QD
     Route: 065
     Dates: start: 20161004, end: 20161004
  22. PROZAC [Suspect]
     Active Substance: FLUOXETINE HYDROCHLORIDE
     Indication: OBSESSIVE-COMPULSIVE DISORDER
     Dosage: UNK UNK, BID
     Route: 048
  23. PROZAC [Suspect]
     Active Substance: FLUOXETINE HYDROCHLORIDE
     Indication: DEPRESSION
  24. CYMBALTA [Suspect]
     Active Substance: DULOXETINE HYDROCHLORIDE
     Indication: DEPRESSION
  25. STRATTERA [Suspect]
     Active Substance: ATOMOXETINE HYDROCHLORIDE
     Indication: OBSESSIVE-COMPULSIVE DISORDER
     Dosage: 80 MG, QD
     Route: 065
     Dates: start: 20161003, end: 20161003
  26. STRATTERA [Suspect]
     Active Substance: ATOMOXETINE HYDROCHLORIDE
     Dosage: 40 MG, QD
     Route: 065
     Dates: start: 20161006
  27. QUETIAPINE. [Concomitant]
     Active Substance: QUETIAPINE
     Indication: PRODUCT USED FOR UNKNOWN INDICATION
     Dosage: UNK, UNKNOWN
     Route: 065

REACTIONS (22)
  - Emotional disorder [Not Recovered/Not Resolved]
  - Pain [Unknown]
  - Negative thoughts [Not Recovered/Not Resolved]
  - Depression [Not Recovered/Not Resolved]
  - Musculoskeletal stiffness [Not Recovered/Not Resolved]
  - Depressed mood [Not Recovered/Not Resolved]
  - Drug ineffective [Unknown]
  - Drug ineffective [Not Recovered/Not Resolved]
  - Feeling abnormal [Unknown]
  - Palpitations [Not Recovered/Not Resolved]
  - Product use issue [Unknown]
  - Drug dose omission [Unknown]
  - Suicidal ideation [Not Recovered/Not Resolved]
  - Obsessive thoughts [Unknown]
  - Mood altered [Unknown]
  - Laziness [Not Recovered/Not Resolved]
  - Panic attack [Not Recovered/Not Resolved]
  - Drug dependence [Not Recovered/Not Resolved]
  - Distractibility [Not Recovered/Not Resolved]
  - Condition aggravated [Not Recovered/Not Resolved]
  - Anxiety [Unknown]
  - Attention deficit/hyperactivity disorder [Not Recovered/Not Resolved]

NARRATIVE: CASE EVENT DATE: 2008
